FAERS Safety Report 16159751 (Version 1)
Quarter: 2019Q2

REPORT INFORMATION
  Report Type: Spontaneous
  Country: GB (occurrence: GB)
  Receive Date: 20190404
  Receipt Date: 20190404
  Transmission Date: 20190711
  Serious: Yes (Other)
  Sender: FDA-Public Use
  Company Number: GB-TEVA-2019-GB-1032628

PATIENT
  Age: 82 Year
  Sex: Male
  Weight: 70 kg

DRUGS (44)
  1. GELASPAN [Concomitant]
     Active Substance: CALCIUM CHLORIDE\MAGNESIUM CHLORIDE\POTASSIUM CHLORIDE\SODIUM ACETATE \SODIUM CHLORIDE\SUCCINYLATED GELATIN
     Dates: start: 20181212, end: 20190204
  2. APIXABAN [Concomitant]
     Active Substance: APIXABAN
     Dosage: 2 DOSAGE FORMS DAILY; 1 TABLET - ADMIN TIMES: 08:00, 20:00
     Route: 048
     Dates: start: 20190204
  3. ARACHIS OIL [Concomitant]
     Dates: start: 20181213, end: 20190204
  4. PARACETAMOL [Concomitant]
     Active Substance: ACETAMINOPHEN
     Dosage: 2 TABLET OR AS REQUIRED. NO MORE THAN 8 TABLET IN 24 HOURS
     Route: 048
     Dates: start: 20180828
  5. OXYCODONE HYDROCHLORIDE. [Concomitant]
     Active Substance: OXYCODONE HYDROCHLORIDE
     Dates: start: 20181212, end: 20190204
  6. PHOSPHATE SANDOZ EFFERVESCENT [Concomitant]
     Dates: start: 20181225, end: 20181228
  7. OXYGEN. [Concomitant]
     Active Substance: OXYGEN
     Dosage: CONTINUOUS 2-12 LITRES/MINUTE
     Dates: start: 20181211, end: 20190117
  8. DOXAZOSIN [Concomitant]
     Active Substance: DOXAZOSIN\DOXAZOSIN MESYLATE
     Dates: start: 20180828, end: 20190213
  9. FERROUS FUMARATE [Concomitant]
     Active Substance: FERROUS FUMARATE
     Dosage: 3 DOSAGE FORMS DAILY;
     Dates: start: 20190204
  10. LACTULOSE. [Concomitant]
     Active Substance: LACTULOSE
     Dosage: 10-20 ML
     Dates: start: 20181211, end: 20181221
  11. ZOPICLONE [Concomitant]
     Active Substance: ZOPICLONE
     Dates: start: 20190118, end: 20190204
  12. LOPERAMIDE [Concomitant]
     Active Substance: LOPERAMIDE
     Dosage: 2 DOSAGE FORMS DAILY; 2 CAPSULE - ADMIN TIMES: 08:00
     Route: 048
     Dates: start: 20190204
  13. RELAXIT [Concomitant]
     Dosage: 1 DOSAGE FORMS DAILY;
     Dates: start: 20181213, end: 20181213
  14. PHYTOMENADIONE [Concomitant]
     Active Substance: PHYTONADIONE
     Dates: start: 20181222, end: 20181222
  15. SODIUM LACTATE. [Concomitant]
     Active Substance: SODIUM LACTATE
     Dates: start: 20181223, end: 20190204
  16. CYCLIZINE [Concomitant]
     Active Substance: CYCLIZINE
     Dates: start: 20181211, end: 20190204
  17. SODIUM CHLORIDE. [Concomitant]
     Active Substance: SODIUM CHLORIDE
     Dates: start: 20190130, end: 20190204
  18. GAVISCON ADVANCE [Concomitant]
     Active Substance: POTASSIUM BICARBONATE\SODIUM ALGINATE
     Dosage: 5-15 ML OR AS REQUIRED AFTER MEALS.
     Route: 048
     Dates: start: 20190204, end: 20190218
  19. NITROFURANTOIN. [Suspect]
     Active Substance: NITROFURANTOIN
     Dosage: 200 MILLIGRAM DAILY; TAKE ONE CAPSULE TWICE DAILY FOR SEVEN DAYS
     Dates: start: 20190227
  20. POTASSIUM CHLORIDE. [Concomitant]
     Active Substance: POTASSIUM CHLORIDE
     Dates: start: 20181214, end: 20181214
  21. HYOSCINE BUTYLBROMIDE [Concomitant]
     Active Substance: BUTYLSCOPOLAMINE BROMIDE
     Dates: start: 20190204
  22. DIGOXIN. [Concomitant]
     Active Substance: DIGOXIN
     Dates: start: 20181222, end: 20190204
  23. PEPPERMINT OIL [Concomitant]
     Active Substance: PEPPERMINT OIL
     Dosage: 3 DOSAGE FORMS DAILY;
     Dates: start: 20190204
  24. SANDO-K [Concomitant]
     Active Substance: POTASSIUM BICARBONATE\POTASSIUM CHLORIDE
     Dates: start: 20181228, end: 20181231
  25. DIHYDROCODEINE [Concomitant]
     Active Substance: DIHYDROCODEINE
     Dates: start: 20181219, end: 20190204
  26. MAGNESIUM ASPARTATE [Concomitant]
     Active Substance: MAGNESIUM ASPARTATE
     Dosage: 1 SACHET
     Dates: start: 20181228, end: 20190104
  27. METOCLOPRAMIDE. [Concomitant]
     Active Substance: METOCLOPRAMIDE
     Dates: start: 20181213, end: 20181220
  28. LANSOPRAZOLE. [Concomitant]
     Active Substance: LANSOPRAZOLE
     Dates: start: 20180828, end: 20190213
  29. AMOXICILLIN. [Concomitant]
     Active Substance: AMOXICILLIN
     Dosage: 3 DOSAGE FORMS DAILY;
     Dates: start: 20190212, end: 20190217
  30. CANDESARTAN. [Concomitant]
     Active Substance: CANDESARTAN
     Dates: start: 20180828, end: 20190213
  31. ORAL REHYDRATION SALTS [Concomitant]
     Dosage: 2 DOSAGE FORMS DAILY; 1 SACHET - ADMIN TIMES: 08:00, 20:00
     Route: 048
     Dates: start: 20190204, end: 20190218
  32. WARFARIN SODIUM. [Concomitant]
     Active Substance: WARFARIN SODIUM
     Dosage: VARIABLE DOSE
     Dates: start: 20180828, end: 20190213
  33. ONDANSETRON [Concomitant]
     Active Substance: ONDANSETRON
     Dates: start: 20181211, end: 20190204
  34. GENTAMICIN. [Concomitant]
     Active Substance: GENTAMICIN
     Dates: start: 20181226, end: 20190204
  35. METRONIDAZOLE. [Concomitant]
     Active Substance: METRONIDAZOLE
     Dates: start: 20181221, end: 20181227
  36. MACROGOL [Concomitant]
     Active Substance: POLYETHYLENE GLYCOLS
     Dosage: 2 SACHET
     Dates: start: 20180828, end: 20190213
  37. OMNIPAQUE [Concomitant]
     Active Substance: IOHEXOL
     Dates: start: 20181221, end: 20181221
  38. UNSPECIFIED MEDICATION [Concomitant]
     Active Substance: UNSPECIFIED INGREDIENT
     Dosage: USE AS DIRECTED
     Dates: start: 20190301
  39. TINZAPARIN [Concomitant]
     Active Substance: TINZAPARIN
     Dates: start: 20181223, end: 20190112
  40. CEFUROXIME. [Concomitant]
     Active Substance: CEFUROXIME
     Dates: start: 20181211, end: 20181212
  41. CLOTRIMAZOLE. [Concomitant]
     Active Substance: CLOTRIMAZOLE
     Dates: start: 20190212, end: 20190219
  42. SODIUM ALGINATE [Concomitant]
     Active Substance: SODIUM ALGINATE
     Dosage: 1 DOSAGE FORMS DAILY; 5-10 ML - ADMIN TIMES: 22:00
     Route: 048
     Dates: start: 20190204, end: 20190218
  43. BISOPROLOL [Concomitant]
     Active Substance: BISOPROLOL
     Dosage: 1 DOSAGE FORMS DAILY;
     Dates: start: 20180828
  44. GLYCEROL [Concomitant]
     Active Substance: GLYCERIN
     Dates: start: 20181213, end: 20190204

REACTIONS (2)
  - Blood alkaline phosphatase increased [Not Recovered/Not Resolved]
  - Alanine aminotransferase increased [Not Recovered/Not Resolved]
